FAERS Safety Report 5244087-5 (Version None)
Quarter: 2007Q1

REPORT INFORMATION
  Report Type: 
  Country: None (occurrence: None)
  Receive Date: 20070222
  Receipt Date: 20070212
  Transmission Date: 20070707
  Serious: Yes (Hospitalization)
  Sender: FDA-Public Use
  Company Number: 2007UW02900

PATIENT
  Sex: Female

DRUGS (2)
  1. ATACAND [Suspect]
     Indication: CARDIOVASCULAR EVENT PROPHYLAXIS
     Route: 048
  2. ATACAND [Suspect]
     Route: 048

REACTIONS (2)
  - DIZZINESS [None]
  - ISCHAEMIC CARDIOMYOPATHY [None]
